FAERS Safety Report 23163198 (Version 6)
Quarter: 2024Q1

REPORT INFORMATION
  Report Type: Spontaneous
  Country: AR (occurrence: AR)
  Receive Date: 20231109
  Receipt Date: 20240304
  Transmission Date: 20240410
  Serious: No
  Sender: FDA-Public Use
  Company Number: AR-PFIZER INC-PV202300175663

PATIENT
  Age: 11 Year
  Sex: Male

DRUGS (5)
  1. GENOTROPIN [Suspect]
     Active Substance: SOMATROPIN
     Indication: Foetal growth restriction
     Dosage: 1 TO 1.4MG 7 TIMES PER WEEK
     Dates: start: 20231010
  2. GENOTROPIN [Suspect]
     Active Substance: SOMATROPIN
     Dosage: 1 TO 1.4MG 7 TIMES PER WEEK
     Dates: start: 20231010
  3. GENOTROPIN [Suspect]
     Active Substance: SOMATROPIN
     Dosage: 1MG, 7 TIMES PER WEEK
     Dates: start: 20231010
  4. GENOTROPIN [Suspect]
     Active Substance: SOMATROPIN
     Dosage: 1 MG 7 TIMES PER WEEK
     Dates: end: 20231023
  5. GENOTROPIN [Suspect]
     Active Substance: SOMATROPIN
     Dosage: 1 MG, 7 TIMES PER WEEK

REACTIONS (6)
  - Drug dose omission by device [Unknown]
  - Wrong technique in device usage process [Unknown]
  - Liquid product physical issue [Unknown]
  - Device issue [Unknown]
  - Device leakage [Unknown]
  - Poor quality device used [Unknown]

NARRATIVE: CASE EVENT DATE: 20230101
